FAERS Safety Report 8968302 (Version 1)
Quarter: 2012Q4

REPORT INFORMATION
  Report Type: 
  Country: US (occurrence: US)
  Receive Date: 20121217
  Receipt Date: 20121217
  Transmission Date: 20130627
  Serious: Yes (Other)
  Sender: FDA-Public Use
  Company Number: CHPA2012US024866

PATIENT
  Age: 61 Year
  Sex: Female

DRUGS (1)
  1. 4 WAY FAST ACTING NASAL SPRAY [Suspect]
     Indication: DYSPNOEA
     Dosage: Unk, Unk
     Route: 045

REACTIONS (3)
  - Drug dependence [Unknown]
  - Insomnia [Not Recovered/Not Resolved]
  - Disease recurrence [Unknown]
